FAERS Safety Report 22519368 (Version 1)
Quarter: 2023Q2

REPORT INFORMATION
  Report Type: Spontaneous
  Country: US (occurrence: US)
  Receive Date: 20230605
  Receipt Date: 20230605
  Transmission Date: 20230721
  Serious: No
  Sender: FDA-Public Use
  Company Number: US-AMGEN-USASP2023095862

PATIENT
  Age: 63 Year
  Sex: Female

DRUGS (1)
  1. TAVNEOS [Suspect]
     Active Substance: AVACOPAN
     Indication: Antineutrophil cytoplasmic antibody
     Dosage: 30 MILLIGRAM, BID (TAKE 30 MG TWICE DAILY WITH FOOD)
     Route: 048
     Dates: start: 20230521

REACTIONS (2)
  - Decreased appetite [Unknown]
  - Ageusia [Unknown]

NARRATIVE: CASE EVENT DATE: 20230501
